FAERS Safety Report 5792972-8 (Version None)
Quarter: 2008Q2

REPORT INFORMATION
  Report Type: 
  Country: None (occurrence: None)
  Receive Date: 20080626
  Receipt Date: 20080626
  Transmission Date: 20081010
  Serious: No
  Sender: FDA-Public Use
  Company Number: None

PATIENT

DRUGS (2)
  1. PROTONIX IV [Suspect]
     Indication: PREOPERATIVE CARE
     Dosage: ONCE
     Dates: start: 20080624, end: 20080624
  2. ONDANSETRON [Suspect]
     Indication: PREOPERATIVE CARE
     Dosage: 4MG ONCE
     Dates: start: 20080624, end: 20080624

REACTIONS (1)
  - PHARMACEUTICAL PRODUCT COMPLAINT [None]
